FAERS Safety Report 6153517-6 (Version None)
Quarter: 2009Q2

REPORT INFORMATION
  Report Type: 
  Country: None (occurrence: None)
  Receive Date: 20090409
  Receipt Date: 20090409
  Transmission Date: 20091009
  Serious: Yes (Death)
  Sender: FDA-Public Use
  Company Number: None

PATIENT
  Age: 87 Year
  Sex: Female

DRUGS (1)
  1. WARFARIN SODIUM [Suspect]
     Indication: DEEP VEIN THROMBOSIS
     Dosage: 1 MG EVERY OTHER DAY PO 2 MG EVERY OTHER DAY PO
     Route: 048

REACTIONS (10)
  - CATHETER RELATED COMPLICATION [None]
  - CELLULITIS [None]
  - DEPENDENCE ON ENABLING MACHINE OR DEVICE [None]
  - DIALYSIS [None]
  - GASTROINTESTINAL HAEMORRHAGE [None]
  - HAEMATOMA [None]
  - HYPOXIA [None]
  - MULTI-ORGAN FAILURE [None]
  - PNEUMONIA [None]
  - SEPSIS [None]
